FAERS Safety Report 14731052 (Version 1)
Quarter: 2018Q2

REPORT INFORMATION
  Report Type: Spontaneous
  Country: US (occurrence: US)
  Receive Date: 20180406
  Receipt Date: 20180406
  Transmission Date: 20180711
  Serious: No
  Sender: FDA-Public Use
  Company Number: US-009507513-1803USA003309

PATIENT
  Age: 63 Year
  Sex: Male
  Weight: 82 kg

DRUGS (8)
  1. VANCOMYCIN [Concomitant]
     Active Substance: VANCOMYCIN
     Indication: PROPIONIBACTERIUM INFECTION
  2. DOXYCYCLINE. [Concomitant]
     Active Substance: DOXYCYCLINE
     Indication: BURSITIS INFECTIVE STAPHYLOCOCCAL
     Dosage: 100 MG, TWO TIMES PER DAY
     Route: 048
     Dates: start: 2015, end: 2015
  3. CEFTRIAXONE. [Concomitant]
     Active Substance: CEFTRIAXONE
     Indication: PROPIONIBACTERIUM INFECTION
  4. INVANZ [Suspect]
     Active Substance: ERTAPENEM SODIUM
     Indication: BURSITIS INFECTIVE STAPHYLOCOCCAL
  5. VANCOMYCIN [Concomitant]
     Active Substance: VANCOMYCIN
     Indication: BURSITIS INFECTIVE STAPHYLOCOCCAL
     Dosage: 1.5 G, TWO TIMES PER DAY
     Route: 042
     Dates: start: 2015, end: 2015
  6. DOXYCYCLINE. [Concomitant]
     Active Substance: DOXYCYCLINE
     Indication: PROPIONIBACTERIUM INFECTION
  7. INVANZ [Suspect]
     Active Substance: ERTAPENEM SODIUM
     Indication: PROPIONIBACTERIUM INFECTION
     Dosage: 1 G, DAILY
     Dates: start: 2015, end: 2015
  8. CEFTRIAXONE. [Concomitant]
     Active Substance: CEFTRIAXONE
     Indication: BURSITIS INFECTIVE STAPHYLOCOCCAL
     Dosage: 1.0 G, DAILY
     Route: 030
     Dates: start: 2015, end: 2015

REACTIONS (1)
  - Drug ineffective [Unknown]

NARRATIVE: CASE EVENT DATE: 2015
